FAERS Safety Report 9346909 (Version 2)
Quarter: 2014Q2

REPORT INFORMATION
  Report Type: Report from Study
  Country: US (occurrence: US)
  Receive Date: 20130613
  Receipt Date: 20140512
  Transmission Date: 20141212
  Serious: No
  Sender: FDA-Public Use
  Company Number: PHEH2013US012512

PATIENT
  Sex: Male

DRUGS (5)
  1. TASIGNA [Suspect]
     Indication: CHRONIC MYELOID LEUKAEMIA
     Dosage: 300 MG, BID
     Route: 048
     Dates: start: 20130507
  2. TASIGNA [Suspect]
     Dosage: 2 DF, BID
     Route: 048
     Dates: start: 20130508, end: 201404
  3. LIPITOR [Concomitant]
     Dosage: 10 MG, UNK
  4. TARKA [Concomitant]
     Dosage: UNK UKN, UNK
  5. TRANDOLAPRIL [Concomitant]
     Dosage: 1 MG, UNK

REACTIONS (2)
  - Neutrophil count abnormal [Unknown]
  - Dysphonia [Unknown]
